FAERS Safety Report 8186980-X (Version None)
Quarter: 2012Q1

REPORT INFORMATION
  Report Type: 
  Country: None (occurrence: None)
  Receive Date: 20120213
  Receipt Date: 20111216
  Transmission Date: 20120608
  Serious: No
  Sender: FDA-Public Use
  Company Number: 1000026319

PATIENT
  Sex: Female

DRUGS (2)
  1. SAVELLA [Suspect]
     Indication: FIBROMYALGIA
     Dosage: 12.5 MG (12.5 MG, 1 IN 1 D), ORAL
     Route: 048
     Dates: start: 20100101, end: 20100101
  2. TRAZODONE (TRAZODONE) (TRAZODONE) [Concomitant]

REACTIONS (3)
  - BACK PAIN [None]
  - SCIATICA [None]
  - PHOTOPHOBIA [None]
